FAERS Safety Report 22307849 (Version 1)
Quarter: 2023Q2

REPORT INFORMATION
  Report Type: Report from Study
  Country: US (occurrence: None)
  Receive Date: 20230511
  Receipt Date: 20230511
  Transmission Date: 20230721
  Serious: Yes (Hospitalization)
  Sender: FDA-Public Use
  Company Number: 2023A107131

PATIENT
  Age: 30339 Day
  Sex: Male

DRUGS (1)
  1. LYNPARZA [Suspect]
     Active Substance: OLAPARIB
     Indication: Prostate cancer
     Route: 048
     Dates: start: 202302

REACTIONS (4)
  - Drug intolerance [Unknown]
  - Tubulointerstitial nephritis [Unknown]
  - Idiosyncratic drug reaction [Unknown]
  - Underdose [Unknown]

NARRATIVE: CASE EVENT DATE: 20230422
